FAERS Safety Report 19272120 (Version 2)
Quarter: 2021Q2

REPORT INFORMATION
  Report Type: Report from Study
  Country: FR (occurrence: FR)
  Receive Date: 20210518
  Receipt Date: 20210607
  Transmission Date: 20210717
  Serious: Yes (Hospitalization, Other)
  Sender: FDA-Public Use
  Company Number: FR-BRISTOL-MYERS SQUIBB COMPANY-BMS-2021-039999

PATIENT
  Age: 41 Year
  Sex: Male
  Weight: 60 kg

DRUGS (9)
  1. OFLOCET [OFLOXACIN] [Concomitant]
     Active Substance: OFLOXACIN
     Indication: PRODUCT USED FOR UNKNOWN INDICATION
     Dosage: UNK
     Route: 065
  2. IVERMECTINE [Concomitant]
     Active Substance: IVERMECTIN
     Indication: PRODUCT USED FOR UNKNOWN INDICATION
     Dosage: UNK
     Route: 065
  3. NIVOLUMAB [Suspect]
     Active Substance: NIVOLUMAB
     Indication: COLORECTAL CANCER METASTATIC
     Dosage: 240 MILLIGRAM
     Route: 042
     Dates: start: 20200826
  4. AUGMENTIN [Concomitant]
     Active Substance: AMOXICILLIN\CLAVULANATE POTASSIUM
     Indication: LYMPHADENOPATHY
     Dosage: UNK
     Route: 065
  5. ELIQUIS [Concomitant]
     Active Substance: APIXABAN
     Indication: PRODUCT USED FOR UNKNOWN INDICATION
     Dosage: 5 MILLIGRAM
     Route: 048
     Dates: start: 20200227
  6. PYOSTACINE [Concomitant]
     Active Substance: PRISTINAMYCIN
     Indication: LYMPHADENOPATHY
     Dosage: UNK
     Route: 065
  7. PRIMPERAN [Concomitant]
     Active Substance: METOCLOPRAMIDE HYDROCHLORIDE
     Indication: PRODUCT USED FOR UNKNOWN INDICATION
     Dosage: 1 DOSAGE FORM
     Route: 048
     Dates: start: 202006
  8. TOBREX [Concomitant]
     Active Substance: TOBRAMYCIN
     Indication: OCULAR HYPERAEMIA
     Dosage: UNK
     Route: 065
     Dates: start: 202103
  9. RIFAMPICINE [Concomitant]
     Active Substance: RIFAMPIN
     Indication: OCULAR HYPERAEMIA
     Dosage: UNK
     Route: 065
     Dates: end: 20210420

REACTIONS (1)
  - Sialoadenitis [Recovered/Resolved]

NARRATIVE: CASE EVENT DATE: 20210422
